FAERS Safety Report 19778595 (Version 1)
Quarter: 2021Q3

REPORT INFORMATION
  Report Type: Spontaneous
  Country: US (occurrence: US)
  Receive Date: 20210902
  Receipt Date: 20210902
  Transmission Date: 20211014
  Serious: No
  Sender: FDA-Public Use
  Company Number: US-AMGEN-USASP2021133461

PATIENT

DRUGS (1)
  1. EPOETIN ALFA [Suspect]
     Active Substance: ERYTHROPOIETIN
     Indication: ANAEMIA NEONATAL
     Dosage: 250 TO 300 UNITS/KG/DOSE 3 TIMES A WEEK BY INTAVENOUS AND SUBCUTANEOUS INJECTION
     Route: 065

REACTIONS (1)
  - Off label use [Unknown]
